FAERS Safety Report 19673281 (Version 1)
Quarter: 2021Q3

REPORT INFORMATION
  Report Type: Spontaneous
  Country: US (occurrence: US)
  Receive Date: 20210809
  Receipt Date: 20210809
  Transmission Date: 20211014
  Serious: No
  Sender: FDA-Public Use
  Company Number: US-SA-2021SA255404

PATIENT
  Age: 66 Year
  Sex: Male

DRUGS (1)
  1. TOUJEO MAX [Suspect]
     Active Substance: INSULIN GLARGINE
     Dosage: 10 IU, QD (ONCE DAILY)
     Route: 065
     Dates: start: 20210729

REACTIONS (4)
  - Hypoglycaemia [Unknown]
  - Hyperhidrosis [Unknown]
  - Product storage error [Unknown]
  - Disorientation [Unknown]

NARRATIVE: CASE EVENT DATE: 20210729
